FAERS Safety Report 9874696 (Version 2)
Quarter: 2014Q1

REPORT INFORMATION
  Report Type: Report from Study
  Country: MX (occurrence: MX)
  Receive Date: 20140206
  Receipt Date: 20140207
  Transmission Date: 20141002
  Serious: Yes (Other)
  Sender: FDA-Public Use
  Company Number: PHHY2014MX013294

PATIENT
  Age: 77 Year
  Sex: Male
  Weight: 60 kg

DRUGS (2)
  1. ONBREZ [Suspect]
     Indication: PULMONARY VALVE INCOMPETENCE
     Dosage: 150 UG, DAILY
     Route: 055
     Dates: start: 201310
  2. ONBREZ [Suspect]
     Indication: OFF LABEL USE

REACTIONS (6)
  - Candida infection [Not Recovered/Not Resolved]
  - Malaise [Recovered/Resolved]
  - Dyspnoea [Recovered/Resolved]
  - Increased upper airway secretion [Recovered/Resolved]
  - Secretion discharge [Recovered/Resolved]
  - Oropharyngeal pain [Recovered/Resolved]
